FAERS Safety Report 5655597-0 (Version None)
Quarter: 2008Q1

REPORT INFORMATION
  Report Type: 
  Country: None (occurrence: None)
  Receive Date: 20080307
  Receipt Date: 20080227
  Transmission Date: 20080703
  Serious: Yes (Other)
  Sender: FDA-Public Use
  Company Number: CA-JNJFOC-20080300278

PATIENT
  Age: 21 Year
  Sex: Male

DRUGS (1)
  1. SIMPLY SLEEP [Suspect]
     Indication: INSOMNIA
     Route: 048

REACTIONS (2)
  - DEPRESSION [None]
  - SUICIDAL IDEATION [None]
